FAERS Safety Report 7100277-8 (Version None)
Quarter: 2010Q4

REPORT INFORMATION
  Report Type: 
  Country: None (occurrence: None)
  Receive Date: 20101112
  Receipt Date: 20101108
  Transmission Date: 20110411
  Serious: Yes (Life-Threatening)
  Sender: FDA-Public Use
  Company Number: PHHY2010US75489

PATIENT
  Sex: Female

DRUGS (1)
  1. RECLAST [Suspect]
     Dosage: 5 MG
     Route: 042

REACTIONS (7)
  - ABASIA [None]
  - APHAGIA [None]
  - FEELING ABNORMAL [None]
  - MOVEMENT DISORDER [None]
  - MUSCLE DISORDER [None]
  - PAIN [None]
  - TRISMUS [None]
